FAERS Safety Report 10643203 (Version 1)
Quarter: 2014Q4

REPORT INFORMATION
  Report Type: Spontaneous
  Country: US (occurrence: None)
  Receive Date: 20141121
  Receipt Date: 20141121
  Transmission Date: 20150529
  Serious: No
  Sender: FDA-Public Use
  Company Number: USA-2014094317

PATIENT
  Age: 58 Year
  Sex: Male

DRUGS (13)
  1. MECLIZINE(MECLOZINE) [Concomitant]
  2. HYDROCODONE(HYDROCODONE) [Concomitant]
  3. FLEXERIL [Concomitant]
     Active Substance: CYCLOBENZAPRINE HYDROCHLORIDE
  4. CRESTOR(ROSUVASTATIN CALCIUM) [Concomitant]
  5. ASTELIN (AZELASTINE HYDROCHLORIDE) [Concomitant]
     Active Substance: AZELASTINE HYDROCHLORIDE
  6. OTEZLA [Suspect]
     Active Substance: APREMILAST
     Indication: PSORIATIC ARTHROPATHY
     Route: 048
  7. PANTOPRAZOLE(PANTOPRAZOLE) [Concomitant]
  8. FOLIC ACID (FOLIC ACID) [Concomitant]
     Active Substance: FOLIC ACID
  9. MELOXICAM(MELOXICAM) [Concomitant]
  10. SYNTHROID [Concomitant]
     Active Substance: LEVOTHYROXINE SODIUM
  11. CLARITHROMYCIN (CLARITHROMYCIN) [Concomitant]
     Active Substance: CLARITHROMYCIN
  12. ALLEGRA(FEXOFENADINE HYDROCHLORIDE) [Concomitant]
  13. METHOTREXATE(METHOTREXATE) [Concomitant]

REACTIONS (3)
  - Fatigue [None]
  - Somnolence [None]
  - Weight decreased [None]
